FAERS Safety Report 7483529-1 (Version None)
Quarter: 2011Q2

REPORT INFORMATION
  Report Type: 
  Country: None (occurrence: None)
  Receive Date: 20110517
  Receipt Date: 20110510
  Transmission Date: 20111010
  Serious: Yes (Death, Other)
  Sender: FDA-Public Use
  Company Number: CN-GENZYME-THYM-1002454

PATIENT

DRUGS (23)
  1. VELCADE [Concomitant]
     Indication: BONE MARROW CONDITIONING REGIMEN
     Dosage: 1 MG, UNK
     Route: 065
     Dates: start: 20071230
  2. THYMOGLOBULIN [Suspect]
     Indication: BONE MARROW CONDITIONING REGIMEN
     Dosage: 5 MG/KG, QD
     Route: 042
  3. FLUDARA [Suspect]
     Indication: CHEMOTHERAPY
     Dosage: 20 MG, QD
     Route: 065
  4. VELCADE [Concomitant]
     Dosage: 1 MG, QD
  5. LYMPHOCYTE TRANSFUSION [Concomitant]
     Route: 065
  6. ETOPOSIDE [Concomitant]
     Indication: PRODUCT USED FOR UNKNOWN INDICATION
     Dosage: 40 MG, QD
     Route: 065
     Dates: start: 20071126
  7. VELCADE [Concomitant]
     Indication: PRODUCT USED FOR UNKNOWN INDICATION
     Dosage: 0.8 MG, UNK
     Route: 065
     Dates: start: 20071129, end: 20071203
  8. LYMPHOCYTE TRANSFUSION [Concomitant]
     Route: 065
  9. THYMOGLOBULIN [Suspect]
     Dosage: 3 MG/KG, QD
     Route: 042
  10. FLUDARA [Suspect]
     Dosage: 35 MG/M2, QD
     Route: 065
  11. ETOPOSIDE [Concomitant]
     Dosage: 100 MG/M2, QD
     Route: 065
  12. METHOTREXATE [Concomitant]
     Indication: CHEMOTHERAPY
     Dosage: 5 MG, UNK
     Route: 065
  13. ETOPOSIDE [Concomitant]
     Indication: BONE MARROW CONDITIONING REGIMEN
     Dosage: 70 MG, QD
     Route: 065
     Dates: start: 20071230
  14. LYMPHOCYTE TRANSFUSION [Concomitant]
     Route: 065
  15. ILGEN-2 [Concomitant]
     Indication: PRODUCT USED FOR UNKNOWN INDICATION
     Dosage: 50000 IU, QD
     Route: 065
  16. FLUDARA [Suspect]
     Indication: BONE MARROW CONDITIONING REGIMEN
     Dosage: 35 MG/M2, QD
     Route: 065
  17. BUSULFAN [Concomitant]
     Indication: BONE MARROW CONDITIONING REGIMEN
     Dosage: 15 MG/M2, QD
     Route: 065
  18. CYCLOSPORINE [Concomitant]
     Indication: BONE MARROW CONDITIONING REGIMEN
     Dosage: 80 MG/M2, QD
     Route: 065
  19. CYCLOPHOSPHAMIDE [Concomitant]
     Indication: BONE MARROW CONDITIONING REGIMEN
     Dosage: 1.2 G/M2, QD
     Route: 065
  20. CYCLOPHOSPHAMIDE [Concomitant]
     Dosage: 0.65 G/M2, QD
     Route: 065
  21. LYMPHOCYTE TRANSFUSION [Concomitant]
     Indication: PRODUCT USED FOR UNKNOWN INDICATION
     Route: 065
  22. LYMPHOCYTE TRANSFUSION [Concomitant]
     Route: 065
  23. LYMPHOCYTE TRANSFUSION [Concomitant]
     Route: 065

REACTIONS (6)
  - GRAFT VERSUS HOST DISEASE [None]
  - ENGRAFT FAILURE [None]
  - CYTOMEGALOVIRUS INFECTION [None]
  - CEREBRAL HAEMORRHAGE [None]
  - ENTEROCOCCAL SEPSIS [None]
  - MEDULLOBLASTOMA [None]
